FAERS Safety Report 25042777 (Version 2)
Quarter: 2025Q1

REPORT INFORMATION
  Report Type: Report from Study
  Country: US (occurrence: US)
  Receive Date: 20250305
  Receipt Date: 20250318
  Transmission Date: 20250409
  Serious: Yes (Hospitalization, Other)
  Sender: ABBVIE
  Company Number: US-ABBVIE-6155609

PATIENT
  Age: 76 Year
  Sex: Male
  Weight: 106.59 kg

DRUGS (2)
  1. SKYRIZI [Suspect]
     Active Substance: RISANKIZUMAB-RZAA
     Indication: Psoriasis
     Route: 058
     Dates: start: 2020, end: 202501
  2. CEFAZOLIN [Concomitant]
     Active Substance: CEFAZOLIN
     Indication: Gangrene
     Route: 042

REACTIONS (3)
  - Staphylococcal infection [Not Recovered/Not Resolved]
  - Influenza [Recovered/Resolved]
  - Gangrene [Not Recovered/Not Resolved]

NARRATIVE: CASE EVENT DATE: 20250101
